FAERS Safety Report 10261570 (Version 2)
Quarter: 2014Q2

REPORT INFORMATION
  Report Type: Spontaneous
  Country: JP (occurrence: JP)
  Receive Date: 20140626
  Receipt Date: 20140626
  Transmission Date: 20141212
  Serious: Yes (Life-Threatening, Other)
  Sender: FDA-Public Use
  Company Number: JP-BAYER-2014-051868

PATIENT
  Age: 84 Year
  Sex: Male

DRUGS (9)
  1. NEXAVAR [Suspect]
     Indication: RENAL CELL CARCINOMA STAGE IV
     Dosage: 400 MG, QD
     Route: 048
     Dates: start: 20140324, end: 20140325
  2. NEXAVAR [Suspect]
     Indication: METASTASES TO LUNG
  3. CELECOXIB [Suspect]
     Indication: FRACTURE PAIN
     Dosage: 100 MG, BID
     Route: 048
     Dates: start: 20140322, end: 20140326
  4. RED BLOOD CELLS [Concomitant]
     Dosage: DAILY DOSE 1 DF
     Dates: start: 20140323, end: 20140324
  5. OXYGEN [Concomitant]
     Dosage: UNK
     Route: 055
     Dates: start: 20140326
  6. REBAMIPIDE [Concomitant]
     Indication: FRACTURE PAIN
     Dosage: 100 MG, BID
     Route: 048
     Dates: start: 20140322, end: 20140326
  7. KN SOL. 3B [Concomitant]
     Dosage: UNK
     Dates: start: 20140317, end: 20140320
  8. PIPERACILLIN SODIUM [Concomitant]
     Dosage: DAILY DOSE 1 G
     Dates: start: 20140317, end: 20140324
  9. TWINPAL [Concomitant]
     Dosage: UNK
     Dates: start: 20140317, end: 20140324

REACTIONS (4)
  - Bronchial haemorrhage [Recovered/Resolved]
  - Inflammation [Recovered/Resolved]
  - Gastrointestinal haemorrhage [Recovered/Resolved]
  - Haematemesis [Recovered/Resolved]
